FAERS Safety Report 7438708-6 (Version None)
Quarter: 2011Q2

REPORT INFORMATION
  Report Type: 
  Country: None (occurrence: None)
  Receive Date: 20110426
  Receipt Date: 20110421
  Transmission Date: 20111010
  Serious: Yes (Hospitalization, Other)
  Sender: FDA-Public Use
  Company Number: US-PFIZER INC-2010181497

PATIENT
  Sex: Female
  Weight: 86.168 kg

DRUGS (8)
  1. CHANTIX [Suspect]
     Dosage: 0.5 MG, 1X/DAY
     Route: 048
     Dates: start: 20080101
  2. PREVACID [Concomitant]
     Dosage: UNK
  3. ABILIFY [Concomitant]
     Indication: BIPOLAR DISORDER
     Dosage: UNK
  4. LEVOTHYROXINE [Concomitant]
     Indication: HYPOTHYROIDISM
     Dosage: UNK
  5. CHANTIX [Suspect]
     Indication: SMOKING CESSATION THERAPY
     Dosage: UNK
     Route: 048
     Dates: start: 20070701, end: 20070701
  6. PROTONIX [Concomitant]
     Indication: GASTROOESOPHAGEAL REFLUX DISEASE
     Dosage: UNK
  7. PERCOCET [Concomitant]
     Indication: PAIN
     Dosage: UNK
  8. LIPITOR [Concomitant]
     Indication: HYPERLIPIDAEMIA
     Dosage: UNK

REACTIONS (2)
  - HAEMORRHAGIC STROKE [None]
  - HEADACHE [None]
